FAERS Safety Report 9786209 (Version 1)
Quarter: 2013Q4

REPORT INFORMATION
  Report Type: Spontaneous
  Country: US (occurrence: US)
  Receive Date: 20131227
  Receipt Date: 20131227
  Transmission Date: 20140711
  Serious: Yes (Death)
  Sender: FDA-Public Use
  Company Number: US-BRISTOL-MYERS SQUIBB COMPANY-19930064

PATIENT
  Age: 59 Year
  Sex: Female

DRUGS (3)
  1. ABILIFY TABS 30 MG [Suspect]
     Indication: SCHIZOPHRENIA
  2. SEROQUEL [Suspect]
     Indication: SCHIZOPHRENIA
  3. DEPAKOTE [Suspect]
     Indication: SCHIZOPHRENIA

REACTIONS (2)
  - Death [Fatal]
  - Drug ineffective [Unknown]
